FAERS Safety Report 20578307 (Version 2)
Quarter: 2022Q1

REPORT INFORMATION
  Report Type: Report from Study
  Country: US (occurrence: US)
  Receive Date: 20220310
  Receipt Date: 20220317
  Transmission Date: 20220423
  Serious: No
  Sender: FDA-Public Use
  Company Number: US-NOVARTISTESTPH-NVSC2022US055877

PATIENT
  Sex: Female

DRUGS (1)
  1. ENTRESTO [Suspect]
     Active Substance: SACUBITRIL\VALSARTAN
     Indication: Cardiac failure
     Dosage: UNK UNK, BID (97/103 MG)
     Route: 048
     Dates: start: 20210915

REACTIONS (6)
  - COVID-19 [Unknown]
  - Fatigue [Unknown]
  - Anosmia [Unknown]
  - Feeling abnormal [Unknown]
  - Blood pressure decreased [Recovering/Resolving]
  - Wrong technique in product usage process [Unknown]
